FAERS Safety Report 15859175 (Version 2)
Quarter: 2019Q1

REPORT INFORMATION
  Report Type: Spontaneous
  Country: US (occurrence: US)
  Receive Date: 20190123
  Receipt Date: 20190129
  Transmission Date: 20190417
  Serious: Yes (Other)
  Sender: FDA-Public Use
  Company Number: US-ELI_LILLY_AND_COMPANY-US201901009206

PATIENT
  Sex: Male

DRUGS (5)
  1. HUMALOG [Suspect]
     Active Substance: INSULIN LISPRO
     Indication: TYPE 2 DIABETES MELLITUS
     Dosage: 8 U, BID
     Route: 058
     Dates: start: 2004
  2. LANTUS [Concomitant]
     Active Substance: INSULIN GLARGINE
     Indication: DIABETES MELLITUS
     Dosage: 10 U, DAILY (AT BREAKFAST)
  3. XARELTO [Concomitant]
     Active Substance: RIVAROXABAN
     Indication: PRODUCT USED FOR UNKNOWN INDICATION
  4. HUMALOG [Suspect]
     Active Substance: INSULIN LISPRO
     Dosage: 8 U, BID
     Route: 058
     Dates: start: 2004
  5. NOVOLOG [Concomitant]
     Active Substance: INSULIN ASPART
     Indication: DIABETES MELLITUS

REACTIONS (9)
  - Back disorder [Not Recovered/Not Resolved]
  - Intervertebral disc disorder [Not Recovered/Not Resolved]
  - Intervertebral disc protrusion [Not Recovered/Not Resolved]
  - Limb discomfort [Unknown]
  - Feeling abnormal [Unknown]
  - Incorrect product administration duration [Unknown]
  - Atrial fibrillation [Not Recovered/Not Resolved]
  - Sciatica [Not Recovered/Not Resolved]
  - Circulatory collapse [Not Recovered/Not Resolved]
